FAERS Safety Report 5697047-4 (Version None)
Quarter: 2008Q2

REPORT INFORMATION
  Report Type: 
  Country: None (occurrence: None)
  Receive Date: 20080408
  Receipt Date: 20070322
  Transmission Date: 20081010
  Serious: No
  Sender: FDA-Public Use
  Company Number: US-BAYER-US-2007-010283

PATIENT
  Age: 20 Year
  Sex: Female
  Weight: 48 kg

DRUGS (6)
  1. YASMIN [Suspect]
     Indication: ORAL CONTRACEPTION
     Dates: start: 20050601
  2. AVELOX [Suspect]
     Indication: BRONCHITIS
     Route: 048
  3. ADVAIR HFA [Concomitant]
  4. CLARINEX /USA/ [Concomitant]
  5. SINGULAIR [Concomitant]
  6. ALBUTEROL [Concomitant]

REACTIONS (4)
  - BRONCHITIS [None]
  - DRUG DOSE OMISSION [None]
  - MALAISE [None]
  - METRORRHAGIA [None]
